FAERS Safety Report 6381035-9 (Version None)
Quarter: 2009Q3

REPORT INFORMATION
  Report Type: 
  Country: None (occurrence: None)
  Receive Date: 20090924
  Receipt Date: 20090909
  Transmission Date: 20100115
  Serious: Yes (Hospitalization, Other)
  Sender: FDA-Public Use
  Company Number: AUR-APL-2009-00635

PATIENT
  Age: 23 Year
  Sex: Female

DRUGS (5)
  1. ZIDOVUDINE [Suspect]
     Indication: HIV INFECTION
     Dosage: 600MG, DAILY
     Dates: start: 20040101
  2. LAMIVUDINE [Suspect]
     Indication: HIV INFECTION
     Dosage: 300MG, DAILY
     Dates: start: 20040101
  3. EFAVIRENZ [Suspect]
     Indication: HIV INFECTION
     Dosage: 600MG-DAILY
     Dates: start: 20040101
  4. IMPLANON [Suspect]
     Indication: CONTRACEPTION
     Dates: start: 20030201
  5. EFAVIRENZ INHALATION [Concomitant]

REACTIONS (7)
  - AMENORRHOEA [None]
  - DRUG EXPOSURE DURING PREGNANCY [None]
  - DRUG INTERACTION [None]
  - ECTOPIC PREGNANCY [None]
  - HAEMOGLOBIN DECREASED [None]
  - HIV ANTIBODY POSITIVE [None]
  - PREGNANCY WITH IMPLANT CONTRACEPTIVE [None]
